FAERS Safety Report 20820264 (Version 4)
Quarter: 2022Q4

REPORT INFORMATION
  Report Type: Spontaneous
  Country: US (occurrence: US)
  Receive Date: 20220512
  Receipt Date: 20221228
  Transmission Date: 20230112
  Serious: Yes (Other)
  Sender: FDA-Public Use
  Company Number: US-PFIZER INC-202200028694

PATIENT
  Age: 64 Year
  Sex: Female
  Weight: 76.2 kg

DRUGS (3)
  1. XELJANZ XR [Suspect]
     Active Substance: TOFACITINIB CITRATE
     Indication: Rheumatoid arthritis
     Dosage: 11 MG
  2. XELJANZ XR [Suspect]
     Active Substance: TOFACITINIB CITRATE
     Dosage: 11 MG, 1X/DAY (BY MOUTH AT NIGHT)
     Route: 048
  3. LOSARTAN [Concomitant]
     Active Substance: LOSARTAN
     Indication: Blood pressure abnormal
     Dosage: UNK

REACTIONS (9)
  - Drug dependence [Unknown]
  - Loss of consciousness [Unknown]
  - Malaise [Unknown]
  - COVID-19 [Unknown]
  - Dysuria [Unknown]
  - Urinary tract infection [Unknown]
  - Burning sensation [Unknown]
  - Dysuria [Unknown]
  - Migraine [Unknown]

NARRATIVE: CASE EVENT DATE: 20210901
